FAERS Safety Report 22186110 (Version 1)
Quarter: 2023Q2

REPORT INFORMATION
  Report Type: Spontaneous
  Country: DK (occurrence: DK)
  Receive Date: 20230407
  Receipt Date: 20230407
  Transmission Date: 20230722
  Serious: Yes (Hospitalization)
  Sender: FDA-Public Use
  Company Number: None

PATIENT

DRUGS (1)
  1. ZYBAN [Suspect]
     Active Substance: BUPROPION HYDROCHLORIDE
     Indication: Smoking cessation therapy
     Dosage: UNK
     Route: 048
     Dates: start: 20230222, end: 20230315

REACTIONS (12)
  - Myalgia [Unknown]
  - Dysphagia [Unknown]
  - Erythema [Recovering/Resolving]
  - Chest pain [Unknown]
  - Peripheral swelling [Recovering/Resolving]
  - General physical health deterioration [Unknown]
  - Pharyngeal swelling [Recovered/Resolved]
  - Pruritus [Recovering/Resolving]
  - Skin swelling [Recovering/Resolving]
  - Face oedema [Recovering/Resolving]
  - Arthralgia [Recovering/Resolving]
  - Urticaria [Recovering/Resolving]

NARRATIVE: CASE EVENT DATE: 20230315
